FAERS Safety Report 8934570 (Version 3)
Quarter: 2013Q3

REPORT INFORMATION
  Report Type: Spontaneous
  Country: US (occurrence: US)
  Receive Date: 20121129
  Receipt Date: 20130925
  Transmission Date: 20140515
  Serious: Yes (Other)
  Sender: FDA-Public Use
  Company Number: US-NAPPMUNDI-USA-2012-0096261

PATIENT
  Age: 53 Year
  Sex: Female
  Weight: 70.75 kg

DRUGS (4)
  1. MS CONTIN TABLETS [Suspect]
     Indication: PROCEDURAL PAIN
     Dosage: 15 MG, DAILY
     Route: 048
     Dates: start: 20121008, end: 20121123
  2. MS CONTIN TABLETS [Suspect]
     Indication: PAIN
  3. ZYRTEC [Concomitant]
     Indication: PRODUCT USED FOR UNKNOWN INDICATION
     Dosage: 10 MG, DAILY
     Route: 048
  4. ALPRAZOLAM [Concomitant]
     Indication: PRODUCT USED FOR UNKNOWN INDICATION
     Dosage: 0.5 MG, DAILY; SOMETIMES TWICE A DAY BUT USUALLY ONCE DAILY
     Route: 048

REACTIONS (16)
  - Throat tightness [Recovered/Resolved]
  - Oral mucosal blistering [Recovered/Resolved]
  - Influenza like illness [Recovered/Resolved]
  - Aphagia [Recovered/Resolved]
  - Acne [Recovered/Resolved]
  - Tongue eruption [Recovered/Resolved]
  - Chest discomfort [Recovered/Resolved]
  - Erythema [Recovered/Resolved]
  - Feeling hot [Recovered/Resolved]
  - Dental care [Unknown]
  - Urticaria [Recovered/Resolved]
  - Pruritus [Recovered/Resolved]
  - Rash [Recovered/Resolved]
  - Flushing [Recovered/Resolved]
  - Dyspnoea [Recovered/Resolved]
  - Dry mouth [Recovered/Resolved]
